FAERS Safety Report 7642581-0 (Version None)
Quarter: 2011Q3

REPORT INFORMATION
  Report Type: 
  Country: None (occurrence: None)
  Receive Date: 20110722
  Receipt Date: 20110706
  Transmission Date: 20111222
  Serious: Yes (Hospitalization)
  Sender: FDA-Public Use
  Company Number: USA/USA/ 11/0019015

PATIENT
  Age: 35 Year
  Sex: Female

DRUGS (7)
  1. VALPROIC ACID [Suspect]
     Indication: PRODUCT USED FOR UNKNOWN INDICATION
     Dosage: 1500 MG, QHS, ORAL
     Route: 048
  2. BENZTROPINE MESYLATE [Suspect]
     Indication: EXTRAPYRAMIDAL DISORDER
     Dosage: 1 MG, 3 IN 1 D, ORAL 0.5 MG, 2 IN 1 D, ORAL
     Route: 048
  3. HALOPERIDOL [Suspect]
     Indication: AGITATION
     Dosage: 5 MG, AS REQUIRED
  4. LITHIUM CARBONATE [Suspect]
     Indication: PRODUCT USED FOR UNKNOWN INDICATION
     Dosage: 600 MG, 2 IN 1 D, ORAL
     Route: 048
  5. RISPERIDONE [Suspect]
     Indication: PSYCHOTHERAPY
     Dosage: 4 MG, 3 IN 1 D, ORAL  4 MG, 2 IN 1 D, ORAL
     Route: 048
  6. PERPHENAZINE [Suspect]
     Indication: PRODUCT USED FOR UNKNOWN INDICATION
     Dosage: 16 MG, 3 IN 1 D, ORAL
     Route: 048
  7. OLANZAPINE [Suspect]
     Indication: PRODUCT USED FOR UNKNOWN INDICATION
     Dosage: 20 MG, 2 IN 1 D, ORAL
     Route: 048

REACTIONS (1)
  - ILEUS PARALYTIC [None]
